FAERS Safety Report 8389206 (Version 5)
Quarter: 2016Q3

REPORT INFORMATION
  Report Type: Report from Study
  Country: US (occurrence: US)
  Receive Date: 20120203
  Receipt Date: 20160715
  Transmission Date: 20161109
  Serious: Yes (Other)
  Sender: FDA-Public Use
  Company Number: US-UCBSA-017865

PATIENT
  Age: 53 Year
  Sex: Female
  Weight: 85.91 kg

DRUGS (21)
  1. ENTOCORT EC [Concomitant]
     Active Substance: BUDESONIDE
     Indication: CROHN^S DISEASE
     Dosage: 3 MG, 2X/DAY (BID)
     Dates: start: 20080316
  2. CIPRO [Concomitant]
     Active Substance: CIPROFLOXACIN HYDROCHLORIDE
     Indication: CROHN^S DISEASE
     Dosage: DONE WITH PRESCRIBED COURSE
     Dates: start: 20070620, end: 20070620
  3. ACETAMINOPHEN. [Concomitant]
     Active Substance: ACETAMINOPHEN
     Indication: CROHN^S DISEASE
  4. CELEXA [Concomitant]
     Active Substance: CITALOPRAM HYDROBROMIDE
     Indication: ANXIETY
     Dosage: DAILY DOSE: 20MG
  5. LISINOPRIL. [Concomitant]
     Active Substance: LISINOPRIL
  6. PREDNISONE. [Concomitant]
     Active Substance: PREDNISONE
     Indication: CROHN^S DISEASE
     Dates: start: 20100414, end: 20100421
  7. AZATHIOPRINE. [Concomitant]
     Active Substance: AZATHIOPRINE
     Indication: CROHN^S DISEASE
     Dosage: DISCONTINUED TREATMENT DUE TO INTOLERANCE
     Dates: start: 20080315, end: 20080321
  8. ZYRTEC [Concomitant]
     Active Substance: CETIRIZINE HYDROCHLORIDE
  9. DIPHENOXYLATE WITH ATROPINE [Concomitant]
  10. VITAMIN B12 NATURAL [Concomitant]
     Dosage: 1000 MCG MONTHLY
  11. VITAMIN B12 NATURAL [Concomitant]
     Dosage: 1000 MCG MONTHLY
  12. CERTOLIZUMAB PEGOL CD [Suspect]
     Active Substance: CERTOLIZUMAB PEGOL
     Indication: CROHN^S DISEASE
     Dosage: 400 MG, EV 4 WEEKS
     Route: 058
     Dates: start: 20100115, end: 20100612
  13. MULTIVITAMIN [Concomitant]
     Active Substance: VITAMINS
  14. MESALAMINE. [Concomitant]
     Active Substance: MESALAMINE
     Indication: CROHN^S DISEASE
     Dosage: DISCONTINUED DUE TO INTORERANCE
     Dates: start: 200110, end: 200710
  15. PROTONIX [Concomitant]
     Active Substance: PANTOPRAZOLE SODIUM
     Indication: PRODUCT USED FOR UNKNOWN INDICATION
     Dosage: 1 40 MG TAB DAILY
  16. ATIVAN [Concomitant]
     Active Substance: LORAZEPAM
     Indication: ANXIETY
     Dosage: DOSE:1MG EVERY NIGHT
  17. INFLIXIMAB [Concomitant]
     Active Substance: INFLIXIMAB
     Indication: CROHN^S DISEASE
     Dosage: DISCONTINUED DUE TO INTOLERANCE
     Dates: start: 20080415, end: 20091104
  18. VITAMIN D [Concomitant]
     Active Substance: CHOLECALCIFEROL
     Dosage: DOSE: 5000 DAILY
  19. LAMOTIL [Concomitant]
     Indication: DIARRHOEA
     Dosage: DOSE: 2.5-0.025 MG ONE OR TWO 4X DAILY AS NEEDED
  20. PANTOPRAZOLE SODIUM. [Concomitant]
     Active Substance: PANTOPRAZOLE SODIUM
     Indication: PRODUCT USED FOR UNKNOWN INDICATION
     Dosage: 40 MG, ONCE DAILY (QD)
     Route: 048
  21. FISH OIL [Concomitant]
     Active Substance: FISH OIL
     Dosage: DAILY

REACTIONS (1)
  - Breast cancer metastatic [Not Recovered/Not Resolved]

NARRATIVE: CASE EVENT DATE: 20100825
